FAERS Safety Report 5330952-7 (Version None)
Quarter: 2007Q2

REPORT INFORMATION
  Report Type: 
  Country: None (occurrence: None)
  Receive Date: 20070522
  Receipt Date: 20070511
  Transmission Date: 20071010
  Serious: Yes (Death)
  Sender: FDA-Public Use
  Company Number: JP-ROCHE-448835

PATIENT
  Age: 73 Year
  Sex: Female
  Weight: 29 kg

DRUGS (15)
  1. CELLCEPT [Suspect]
     Indication: SYSTEMIC LUPUS ERYTHEMATOSUS
     Route: 048
     Dates: start: 20060510, end: 20060512
  2. CELLCEPT [Suspect]
     Route: 048
     Dates: start: 20060513, end: 20060515
  3. CELLCEPT [Suspect]
     Route: 048
     Dates: start: 20060516, end: 20060529
  4. CELLCEPT [Suspect]
     Route: 048
     Dates: start: 20060530, end: 20060601
  5. PREDNISOLONE [Concomitant]
     Route: 048
  6. NEORAL [Concomitant]
     Route: 048
  7. POLYMYXIN B SULFATE [Concomitant]
     Route: 048
  8. FUNGIZONE [Concomitant]
     Route: 048
  9. TAKEPRON [Concomitant]
     Route: 048
  10. NORVASC [Concomitant]
     Route: 048
  11. PN TWIN [Concomitant]
     Route: 041
  12. HEPARIN [Concomitant]
  13. MULTIVITAMIN ADDITIVE [Concomitant]
     Route: 041
  14. ADONA [Concomitant]
  15. LASIX [Concomitant]

REACTIONS (2)
  - DIARRHOEA [None]
  - RESPIRATORY FAILURE [None]
